FAERS Safety Report 9153914 (Version 5)
Quarter: 2017Q3

REPORT INFORMATION
  Report Type: Spontaneous
  Country: PL (occurrence: PL)
  Receive Date: 20130311
  Receipt Date: 20170816
  Transmission Date: 20171128
  Serious: Yes (Other)
  Sender: FDA-Public Use
  Company Number: PL-JNJFOC-20130217209

PATIENT

DRUGS (3)
  1. INFLIXIMAB, RECOMBINANT [Suspect]
     Active Substance: INFLIXIMAB
     Indication: COLITIS ULCERATIVE
     Dosage: INDUCTION THERAPY AT 0, 2 AND 6 WEEKS
     Route: 042
  2. AZATHIOPRINE. [Concomitant]
     Active Substance: AZATHIOPRINE
     Route: 065
  3. CYCLOSPORINE. [Concomitant]
     Active Substance: CYCLOSPORINE
     Route: 065

REACTIONS (6)
  - Colectomy [Unknown]
  - Hypersensitivity [Unknown]
  - Colitis ulcerative [Recovering/Resolving]
  - Adverse drug reaction [Unknown]
  - Anaphylactic shock [Unknown]
  - Drug ineffective [Unknown]
